FAERS Safety Report 7246596-6 (Version None)
Quarter: 2011Q1

REPORT INFORMATION
  Report Type: 
  Country: None (occurrence: None)
  Receive Date: 20110127
  Receipt Date: 20110114
  Transmission Date: 20110831
  Serious: No
  Sender: FDA-Public Use
  Company Number: US-BIOGENIDEC-2010BI023054

PATIENT
  Sex: Male

DRUGS (1)
  1. TYSABRI [Suspect]
     Indication: MULTIPLE SCLEROSIS
     Route: 042
     Dates: start: 20070129

REACTIONS (5)
  - BALANCE DISORDER [None]
  - EMOTIONAL DISTRESS [None]
  - GAIT DISTURBANCE [None]
  - TREMOR [None]
  - LOSS OF CONTROL OF LEGS [None]
